FAERS Safety Report 11318986 (Version 1)
Quarter: 2015Q3

REPORT INFORMATION
  Report Type: Spontaneous
  Country: US (occurrence: None)
  Receive Date: 20150727
  Receipt Date: 20150727
  Transmission Date: 20151125
  Serious: No
  Sender: FDA-Public Use
  Company Number: None

PATIENT
  Age: 74 Year
  Sex: Male

DRUGS (1)
  1. NEXAVAR [Suspect]
     Active Substance: SORAFENIB
     Indication: HEPATIC CANCER
     Route: 048
     Dates: start: 20150615, end: 20150720

REACTIONS (5)
  - Decreased appetite [None]
  - Skin exfoliation [None]
  - Asthenia [None]
  - Gingival pain [None]
  - Fatigue [None]

NARRATIVE: CASE EVENT DATE: 20150715
